FAERS Safety Report 4471170-4 (Version None)
Quarter: 2004Q4

REPORT INFORMATION
  Report Type: 
  Country: None (occurrence: None)
  Receive Date: 20041006
  Receipt Date: 20040927
  Transmission Date: 20050328
  Serious: Yes (Death)
  Sender: FDA-Public Use
  Company Number: 2004070031

PATIENT
  Age: 35 Year
  Sex: Female

DRUGS (1)
  1. ELETRIPTAN           (ELETRIPTAN) [Suspect]
     Indication: MIGRAINE WITH AURA
     Dosage: ONCE (40 MG), ORAL
     Route: 048
     Dates: start: 20040924, end: 20040924

REACTIONS (1)
  - SUDDEN DEATH [None]
